FAERS Safety Report 6058164-2 (Version None)
Quarter: 2009Q1

REPORT INFORMATION
  Report Type: 
  Country: None (occurrence: None)
  Receive Date: 20090127
  Receipt Date: 20090115
  Transmission Date: 20090719
  Serious: Yes (Other)
  Sender: FDA-Public Use
  Company Number: 1000003615

PATIENT
  Age: 46 Year
  Sex: Female
  Weight: 46.7 kg

DRUGS (3)
  1. CELEXA [Suspect]
     Indication: DEPRESSION
     Dosage: 30 MG (30 MG, 1 IN 1 D) ,ORAL
     Route: 048
     Dates: start: 20081130, end: 20081207
  2. CELEXA [Suspect]
     Indication: DEPRESSION
     Dosage: 40 MG (40 MG, 1 IN 1 D) ,ORAL; 30 MG (30 MG, 1 IN 1 D) ,ORAL
     Route: 048
     Dates: start: 20081208, end: 20090109
  3. CELEXA [Suspect]
     Indication: DEPRESSION
     Dosage: 40 MG (40 MG, 1 IN 1 D) ,ORAL; 30 MG (30 MG, 1 IN 1 D) ,ORAL
     Route: 048
     Dates: start: 20090110

REACTIONS (2)
  - CONVULSION [None]
  - SKIN DISCOLOURATION [None]
